FAERS Safety Report 5716034-0 (Version None)
Quarter: 2008Q2

REPORT INFORMATION
  Report Type: 
  Country: None (occurrence: None)
  Receive Date: 20080424
  Receipt Date: 20080423
  Transmission Date: 20081010
  Serious: Yes (Other)
  Sender: FDA-Public Use
  Company Number: A0724297A

PATIENT
  Age: 28 Year
  Sex: Female
  Weight: 54.5 kg

DRUGS (2)
  1. ALLI [Suspect]
     Dates: start: 20080406, end: 20080422
  2. STRATTERA [Concomitant]

REACTIONS (2)
  - BACK PAIN [None]
  - VAGINAL HAEMORRHAGE [None]
